FAERS Safety Report 10557099 (Version 2)
Quarter: 2014Q4

REPORT INFORMATION
  Report Type: Spontaneous
  Country: DE (occurrence: DE)
  Receive Date: 20141031
  Receipt Date: 20141113
  Transmission Date: 20150529
  Serious: Yes (Other)
  Sender: FDA-Public Use
  Company Number: DE-AMGEN-DEUSP2014082923

PATIENT
  Age: 83 Year
  Sex: Male

DRUGS (8)
  1. ARANESP [Suspect]
     Active Substance: DARBEPOETIN ALFA
     Indication: HAEMORRHAGE
     Dosage: UNK
     Route: 065
     Dates: start: 20141014
  2. BRILIQUE [Concomitant]
     Active Substance: TICAGRELOR
     Dosage: 90 MG, UNK
     Route: 048
  3. ARANESP [Suspect]
     Active Substance: DARBEPOETIN ALFA
     Indication: ANAEMIA
  4. ASS AL [Concomitant]
     Dosage: 100 MG, UNK
     Route: 048
  5. SIMVASTATIN +PHARMA [Concomitant]
     Dosage: 40 MG, UNK
     Route: 048
  6. HCT HEXAL [Concomitant]
     Active Substance: HYDROCHLOROTHIAZIDE
     Dosage: 25 MG, UNK
     Route: 048
  7. AMLODIPIN DEXCEL [Concomitant]
     Dosage: 5 MG, UNK
     Route: 048
  8. ARANESP [Suspect]
     Active Substance: DARBEPOETIN ALFA
     Indication: CHRONIC KIDNEY DISEASE

REACTIONS (4)
  - Dyspnoea at rest [Not Recovered/Not Resolved]
  - Dysstasia [Unknown]
  - Anaemia [Unknown]
  - Drug ineffective [Unknown]
